FAERS Safety Report 10731054 (Version 4)
Quarter: 2016Q3

REPORT INFORMATION
  Report Type: Spontaneous
  Country: US (occurrence: US)
  Receive Date: 20150122
  Receipt Date: 20160906
  Transmission Date: 20161109
  Serious: Yes (Other)
  Sender: FDA-Public Use
  Company Number: US-PFIZER INC-2015027747

PATIENT
  Age: 40 Year
  Sex: Female

DRUGS (12)
  1. EFFEXOR [Suspect]
     Active Substance: VENLAFAXINE HYDROCHLORIDE
     Indication: MUSCLE DISORDER
  2. BACLOFEN. [Concomitant]
     Active Substance: BACLOFEN
     Indication: NERVE INJURY
     Dosage: 10 MG, 2X/DAY
  3. BACLOFEN. [Concomitant]
     Active Substance: BACLOFEN
     Indication: MUSCLE DISORDER
  4. LYRICA [Suspect]
     Active Substance: PREGABALIN
     Indication: SEIZURE
     Dosage: 200 MG, 2X/DAY (ONE IN THE MORNING AND ONE AT 10PM AT NIGHT), (TAKE A CAPSULE BY MOUTH TWICE DAILY)
     Route: 048
     Dates: start: 2010
  5. EFFEXOR [Suspect]
     Active Substance: VENLAFAXINE HYDROCHLORIDE
     Indication: NERVE INJURY
     Dosage: 37.5 OR 75MG TWICE A DAY
  6. VIMPAT [Concomitant]
     Active Substance: LACOSAMIDE
     Indication: SEIZURE
     Dosage: 50 MG, 3X/DAY
  7. LYRICA [Suspect]
     Active Substance: PREGABALIN
     Indication: PARTIAL SEIZURES
  8. CLINDAMYCIN PHOSPHATE. [Concomitant]
     Active Substance: CLINDAMYCIN PHOSPHATE
     Dosage: UNK
  9. LYRICA [Suspect]
     Active Substance: PREGABALIN
     Indication: EAR DISCOMFORT
  10. EFFEXOR XR [Suspect]
     Active Substance: VENLAFAXINE HYDROCHLORIDE
     Indication: CRYING
  11. EFFEXOR XR [Suspect]
     Active Substance: VENLAFAXINE HYDROCHLORIDE
     Indication: DEPRESSED MOOD
     Dosage: 75 MG AT 4:00 PM AND 150 MG AT BEDTIME
  12. VITAMINS /00067501/ [Concomitant]
     Active Substance: VITAMINS

REACTIONS (7)
  - Somnolence [Unknown]
  - Mouth injury [Unknown]
  - Seizure [Recovered/Resolved with Sequelae]
  - Fatigue [Unknown]
  - Vomiting [Recovered/Resolved]
  - Nausea [Recovered/Resolved]
  - Skin reaction [Unknown]

NARRATIVE: CASE EVENT DATE: 20151007
